FAERS Safety Report 12296455 (Version 2)
Quarter: 2017Q1

REPORT INFORMATION
  Report Type: Spontaneous
  Country: GB (occurrence: GB)
  Receive Date: 20160422
  Receipt Date: 20170131
  Transmission Date: 20170428
  Serious: Yes (Hospitalization)
  Sender: FDA-Public Use
  Company Number: GB-DRREDDYS-GER/UKI/16/0078796

PATIENT
  Age: 69 Year
  Sex: Male

DRUGS (2)
  1. VARGATEF [Suspect]
     Active Substance: NINTEDANIB
     Indication: LUNG NEOPLASM MALIGNANT
     Route: 065
     Dates: start: 20151229
  2. DOCETAXEL. [Suspect]
     Active Substance: DOCETAXEL
     Indication: LUNG NEOPLASM MALIGNANT
     Dates: start: 20151229

REACTIONS (7)
  - Skin discolouration [Unknown]
  - Cyanosis [Unknown]
  - Pyrexia [Unknown]
  - Nausea [Not Recovered/Not Resolved]
  - Diarrhoea [Unknown]
  - Rash papular [Unknown]
  - Neutropenic sepsis [Not Recovered/Not Resolved]

NARRATIVE: CASE EVENT DATE: 20151229
